FAERS Safety Report 7334899-6 (Version None)
Quarter: 2011Q1

REPORT INFORMATION
  Report Type: 
  Country: None (occurrence: None)
  Receive Date: 20110307
  Receipt Date: 20110221
  Transmission Date: 20110831
  Serious: Yes (Hospitalization)
  Sender: FDA-Public Use
  Company Number: JP-ROCHE-634589

PATIENT
  Sex: Male
  Weight: 90 kg

DRUGS (10)
  1. ELPLAT [Suspect]
     Indication: RECTAL CANCER METASTATIC
     Route: 041
     Dates: start: 20080819, end: 20090417
  2. 5-FU [Suspect]
     Dosage: DOSE FORM: INTRAVENOUS DRIP
     Route: 040
     Dates: start: 20080819, end: 20090417
  3. PREDONINE [Suspect]
     Indication: IDIOPATHIC THROMBOCYTOPENIC PURPURA
     Route: 065
     Dates: start: 20090925
  4. LEVOFOLINATE [Suspect]
     Indication: RECTAL CANCER METASTATIC
     Route: 041
     Dates: start: 20080819, end: 20090417
  5. DECADRON [Suspect]
     Indication: PREMEDICATION
     Route: 042
     Dates: start: 20080819, end: 20090417
  6. AVASTIN [Suspect]
     Indication: RECTAL CANCER METASTATIC
     Dosage: STOP DATE: 2009
     Route: 041
     Dates: start: 20081107, end: 20090417
  7. 5-FU [Suspect]
     Indication: RECTAL CANCER METASTATIC
     Dosage: DOSE FORM: INTRAVENOUS BOLUS
     Route: 040
     Dates: start: 20080819, end: 20090417
  8. ONDANSETRON [Suspect]
     Indication: PREMEDICATION
     Route: 042
     Dates: start: 20080819, end: 20090417
  9. PREDONINE [Suspect]
     Route: 065
     Dates: start: 20100312
  10. NORVASC [Concomitant]
     Route: 048

REACTIONS (12)
  - GLUCOSE TOLERANCE IMPAIRED [None]
  - MALAISE [None]
  - IDIOPATHIC THROMBOCYTOPENIC PURPURA [None]
  - EPISTAXIS [None]
  - HAEMATOMA [None]
  - GINGIVAL BLEEDING [None]
  - ANAEMIA [None]
  - DUODENAL ULCER HAEMORRHAGE [None]
  - ASCITES [None]
  - GASTRITIS [None]
  - HELICOBACTER INFECTION [None]
  - MYELODYSPLASTIC SYNDROME [None]
